FAERS Safety Report 11695670 (Version 7)
Quarter: 2016Q4

REPORT INFORMATION
  Report Type: Report from Study
  Country: CA (occurrence: CA)
  Receive Date: 20151104
  Receipt Date: 20161208
  Transmission Date: 20170206
  Serious: Yes (Other)
  Sender: FDA-Public Use
  Company Number: CA-ROCHE-ITM201504IM013676

PATIENT
  Age: 80 Year
  Sex: Male
  Weight: 77.18 kg

DRUGS (22)
  1. ESBRIET [Suspect]
     Active Substance: PIRFENIDONE
     Indication: IDIOPATHIC PULMONARY FIBROSIS
     Route: 048
     Dates: start: 20131112, end: 201506
  2. ESBRIET [Suspect]
     Active Substance: PIRFENIDONE
     Route: 048
     Dates: start: 20131208
  3. ESBRIET [Suspect]
     Active Substance: PIRFENIDONE
     Route: 048
     Dates: start: 201312
  4. ESBRIET [Suspect]
     Active Substance: PIRFENIDONE
     Route: 048
     Dates: start: 20140109
  5. ESBRIET [Suspect]
     Active Substance: PIRFENIDONE
     Route: 048
     Dates: start: 20141027
  6. ESBRIET [Suspect]
     Active Substance: PIRFENIDONE
     Route: 048
     Dates: end: 201506
  7. EZETROL [Concomitant]
     Active Substance: EZETIMIBE
  8. ESBRIET [Suspect]
     Active Substance: PIRFENIDONE
     Route: 048
     Dates: start: 20131205
  9. ESBRIET [Suspect]
     Active Substance: PIRFENIDONE
     Dosage: 534MG-801MG-801 MG
     Route: 048
     Dates: start: 20131226
  10. ESBRIET [Suspect]
     Active Substance: PIRFENIDONE
     Dosage: 801MG-534MG-801MG
     Route: 048
     Dates: start: 20150402
  11. ESBRIET [Suspect]
     Active Substance: PIRFENIDONE
     Route: 048
     Dates: start: 20131126
  12. ESBRIET [Suspect]
     Active Substance: PIRFENIDONE
     Route: 048
     Dates: start: 20140203
  13. ESBRIET [Suspect]
     Active Substance: PIRFENIDONE
     Route: 048
     Dates: start: 20141020
  14. ESBRIET [Suspect]
     Active Substance: PIRFENIDONE
     Route: 048
     Dates: end: 20151130
  15. OFEV [Suspect]
     Active Substance: NINTEDANIB
     Indication: IDIOPATHIC PULMONARY FIBROSIS
     Route: 065
  16. OXYGEN. [Concomitant]
     Active Substance: OXYGEN
  17. ESBRIET [Suspect]
     Active Substance: PIRFENIDONE
     Route: 048
     Dates: start: 20131119
  18. LIPITOR [Concomitant]
     Active Substance: ATORVASTATIN CALCIUM
  19. ESBRIET [Suspect]
     Active Substance: PIRFENIDONE
     Dosage: 534MG-534MG-801MG
     Route: 048
     Dates: start: 20131216
  20. ESBRIET [Suspect]
     Active Substance: PIRFENIDONE
     Dosage: 801 MG/DAY TO 1062 MG/DAY
     Route: 048
     Dates: start: 2015
  21. ESBRIET [Suspect]
     Active Substance: PIRFENIDONE
     Route: 048
     Dates: end: 20151102
  22. ESBRIET [Suspect]
     Active Substance: PIRFENIDONE
     Route: 048
     Dates: end: 20151109

REACTIONS (31)
  - Visual acuity reduced [Unknown]
  - Aortic calcification [Unknown]
  - Aortic valve calcification [Unknown]
  - Arteriosclerosis coronary artery [Unknown]
  - Activities of daily living impaired [Unknown]
  - Asthenia [Unknown]
  - Cerebrovascular accident [Unknown]
  - Cough [Not Recovered/Not Resolved]
  - Walking distance test abnormal [Unknown]
  - Oxygen saturation decreased [Unknown]
  - Headache [Unknown]
  - Brain neoplasm [Unknown]
  - Diarrhoea [Unknown]
  - Weight decreased [Unknown]
  - Middle insomnia [Unknown]
  - Pleural neoplasm [Unknown]
  - Fall [Unknown]
  - Constipation [Unknown]
  - Vomiting [Unknown]
  - Decreased appetite [Not Recovered/Not Resolved]
  - Fatigue [Not Recovered/Not Resolved]
  - Pericardial effusion [Unknown]
  - Head injury [Unknown]
  - Rash [Not Recovered/Not Resolved]
  - Pulmonary function test decreased [Unknown]
  - Decreased activity [Unknown]
  - Frequent bowel movements [Not Recovered/Not Resolved]
  - Dyspnoea [Not Recovered/Not Resolved]
  - Drug ineffective [Unknown]
  - Mitral valve calcification [Unknown]
  - Memory impairment [Unknown]

NARRATIVE: CASE EVENT DATE: 20140424
